FAERS Safety Report 10519176 (Version 1)
Quarter: 2014Q4

REPORT INFORMATION
  Report Type: Spontaneous
  Country: US (occurrence: US)
  Receive Date: 20141015
  Receipt Date: 20141015
  Transmission Date: 20150528
  Serious: No
  Sender: FDA-Public Use
  Company Number: US-GLAXOSMITHKLINE-A1077710A

PATIENT
  Age: 52 Year
  Sex: Male

DRUGS (17)
  1. RANEXA [Concomitant]
     Active Substance: RANOLAZINE
  2. MORPHINE [Concomitant]
     Active Substance: MORPHINE
  3. ATORVASTATIN [Concomitant]
     Active Substance: ATORVASTATIN
  4. FLOMAX [Concomitant]
     Active Substance: TAMSULOSIN HYDROCHLORIDE
  5. NITROGLYCERIN SPRAY [Concomitant]
     Active Substance: NITROGLYCERIN
  6. ISOSORBIDE [Concomitant]
     Active Substance: ISOSORBIDE
  7. CARVEDILOL. [Concomitant]
     Active Substance: CARVEDILOL
  8. ANORO ELLIPTA [Suspect]
     Active Substance: UMECLIDINIUM BROMIDE\VILANTEROL TRIFENATATE
     Indication: CHRONIC OBSTRUCTIVE PULMONARY DISEASE
     Dosage: UNKNOWN
     Route: 055
     Dates: start: 20140604
  9. HYDROCHLOROTHIAZIDE. [Concomitant]
     Active Substance: HYDROCHLOROTHIAZIDE
  10. ENTERIC ASPIRIN [Concomitant]
     Active Substance: ASPIRIN
  11. PLAVIX [Concomitant]
     Active Substance: CLOPIDOGREL BISULFATE
  12. XANAX [Concomitant]
     Active Substance: ALPRAZOLAM
  13. RANITIDINE [Concomitant]
     Active Substance: RANITIDINE\RANITIDINE HYDROCHLORIDE
  14. TRICOR [Concomitant]
     Active Substance: FENOFIBRATE
  15. POLYETHYLENE GLYCOL [Concomitant]
     Active Substance: POLYETHYLENE GLYCOLS
  16. NITROGLYCERIN TABLET [Concomitant]
  17. LISINOPRIL. [Concomitant]
     Active Substance: LISINOPRIL

REACTIONS (10)
  - Asthenia [Recovered/Resolved]
  - Confusional state [Recovered/Resolved]
  - Pain in extremity [Recovered/Resolved]
  - Dysphonia [Recovered/Resolved]
  - Muscular weakness [Unknown]
  - Headache [Recovered/Resolved]
  - Dysgeusia [Unknown]
  - Dizziness [Recovered/Resolved]
  - Lung disorder [Recovered/Resolved]
  - Eye pain [Unknown]

NARRATIVE: CASE EVENT DATE: 201406
